FAERS Safety Report 9217369 (Version 1)
Quarter: 2013Q2

REPORT INFORMATION
  Report Type: Spontaneous
  Country: BR (occurrence: BR)
  Receive Date: 20130408
  Receipt Date: 20130408
  Transmission Date: 20140414
  Serious: Yes (Other)
  Sender: FDA-Public Use
  Company Number: BR-ASTRAZENECA-2013SE21203

PATIENT
  Age: 2413 Week
  Sex: Female
  Weight: 52 kg

DRUGS (3)
  1. CRESTOR [Suspect]
     Indication: BLOOD CHOLESTEROL INCREASED
     Dosage: DAILY
     Route: 048
     Dates: start: 20130312, end: 20130326
  2. CRESTOR [Suspect]
     Indication: BLOOD GLUCOSE INCREASED
     Dosage: DAILY
     Route: 048
     Dates: start: 20130312, end: 20130326
  3. PANTOGAR [Concomitant]
     Indication: ALOPECIA
     Dosage: DAILY
     Dates: start: 201302, end: 20130326

REACTIONS (7)
  - Paraesthesia [Recovered/Resolved]
  - Diarrhoea [Recovered/Resolved]
  - Gastroenteritis [Recovered/Resolved]
  - Abdominal pain [Recovered/Resolved]
  - Nausea [Recovered/Resolved]
  - Fatigue [Recovered/Resolved]
  - Headache [Recovering/Resolving]
